FAERS Safety Report 24339838 (Version 1)
Quarter: 2024Q3

REPORT INFORMATION
  Report Type: Spontaneous
  Country: US (occurrence: US)
  Receive Date: 20240919
  Receipt Date: 20240919
  Transmission Date: 20241017
  Serious: No
  Sender: PFIZER
  Company Number: US-PFIZER INC-202400258465

PATIENT
  Age: 65 Year
  Sex: Female

DRUGS (4)
  1. TUKYSA [Suspect]
     Active Substance: TUCATINIB
     Indication: K-ras gene mutation
     Dosage: TAKE 2 300MG TABLETS TWICE DAILY ORALLY
     Route: 048
  2. TUKYSA [Suspect]
     Active Substance: TUCATINIB
     Indication: N-ras gene mutation
  3. TRASTUZUMAB [Suspect]
     Active Substance: TRASTUZUMAB
     Indication: K-ras gene mutation
     Dosage: UNK
  4. TRASTUZUMAB [Suspect]
     Active Substance: TRASTUZUMAB
     Indication: N-ras gene mutation

REACTIONS (5)
  - Asthenia [Unknown]
  - Decreased appetite [Unknown]
  - Weight decreased [Unknown]
  - Product use issue [Unknown]
  - Off label use [Unknown]
